FAERS Safety Report 5760360-6 (Version None)
Quarter: 2008Q2

REPORT INFORMATION
  Report Type: 
  Country: None (occurrence: None)
  Receive Date: 20080605
  Receipt Date: 20080526
  Transmission Date: 20081010
  Serious: Yes (Other)
  Sender: FDA-Public Use
  Company Number: RO-GENENTECH-262085

PATIENT
  Age: 17 Year
  Sex: Male

DRUGS (4)
  1. MABTHERA [Suspect]
     Indication: JUVENILE ARTHRITIS
     Dosage: 1000 MG, UNK
     Route: 042
     Dates: start: 20080508, end: 20080508
  2. METHOTREXATE [Concomitant]
     Indication: DRUG USE FOR UNKNOWN INDICATION
     Dates: start: 20060101
  3. SOLU-MEDROL [Concomitant]
     Indication: DRUG USE FOR UNKNOWN INDICATION
     Dates: start: 20080508, end: 20080508
  4. GLUCOCORTICOIDS [Concomitant]
     Indication: DRUG USE FOR UNKNOWN INDICATION

REACTIONS (2)
  - ARTHRALGIA [None]
  - ARTHRITIS [None]
